FAERS Safety Report 19237524 (Version 1)
Quarter: 2021Q2

REPORT INFORMATION
  Report Type: Spontaneous
  Country: US (occurrence: US)
  Receive Date: 20210510
  Receipt Date: 20210510
  Transmission Date: 20210717
  Serious: Yes (Hospitalization)
  Sender: FDA-Public Use
  Company Number: None

PATIENT
  Age: 87 Year
  Sex: Male

DRUGS (8)
  1. ASPIRIN 81MG [Concomitant]
     Active Substance: ASPIRIN
  2. LOVASTATIN 20MG [Concomitant]
  3. OLMESARTAN 20MG [Concomitant]
     Active Substance: OLMESARTAN
  4. TAMSULOSIN 0.4MG [Concomitant]
     Active Substance: TAMSULOSIN
  5. LORAZEPAM 1MG [Concomitant]
     Active Substance: LORAZEPAM
  6. TABRECTA [Suspect]
     Active Substance: CAPMATINIB
     Indication: LUNG NEOPLASM MALIGNANT
     Route: 048
     Dates: start: 20201118, end: 20210121
  7. TRAMADOL 50MG [Concomitant]
     Active Substance: TRAMADOL
  8. AMLODIPINE [Concomitant]
     Active Substance: AMLODIPINE BESYLATE

REACTIONS (3)
  - Large intestinal obstruction [None]
  - Fluid retention [None]
  - Intentional dose omission [None]

NARRATIVE: CASE EVENT DATE: 20210121
